FAERS Safety Report 20310502 (Version 1)
Quarter: 2022Q1

REPORT INFORMATION
  Report Type: Spontaneous
  Country: DE (occurrence: DE)
  Receive Date: 20220107
  Receipt Date: 20220107
  Transmission Date: 20220423
  Serious: Yes (Hospitalization)
  Sender: FDA-Public Use
  Company Number: DE-ADRED-07580-01

PATIENT
  Age: 70 Year
  Sex: Female
  Weight: 72 kg

DRUGS (10)
  1. LANTUS [Suspect]
     Active Substance: INSULIN GLARGINE
     Dosage: ACCORDING TO THE SCHEME
     Route: 058
  2. INSULIN ASPART [Suspect]
     Active Substance: INSULIN ASPART
     Dosage: ACCORDING TO THE SCHEME
     Route: 058
  3. PANTOPRAZOLE [Concomitant]
     Active Substance: PANTOPRAZOLE
     Dosage: 40 MG, 1-0-0-0
     Route: 048
  4. SPIRONOLACTONE [Concomitant]
     Active Substance: SPIRONOLACTONE
     Dosage: 25 MG, 1-0-0-0
     Route: 048
  5. CARVEDILOL [Concomitant]
     Active Substance: CARVEDILOL
     Dosage: 25 MG, 1-0-0-1
     Route: 048
  6. RAMIPRIL [Concomitant]
     Active Substance: RAMIPRIL
     Dosage: 5MG, 1-0-0-1
     Route: 048
  7. LERCANIDIPINE [Concomitant]
     Active Substance: LERCANIDIPINE
     Dosage: 10 MG, 1-0-0-1
     Route: 048
  8. POTASSIUM CHLORIDE [Concomitant]
     Active Substance: POTASSIUM CHLORIDE
     Dosage: 600 MG, 1-1-1-0
     Route: 048
  9. NALOXONE HYDROCHLORIDE\TILIDINE HYDROCHLORIDE [Concomitant]
     Active Substance: NALOXONE HYDROCHLORIDE\TILIDINE HYDROCHLORIDE
     Dosage: 4|50 MG, 1-0-0-1
     Route: 048
  10. LEVOTHYROXINE SODIUM [Concomitant]
     Active Substance: LEVOTHYROXINE SODIUM
     Dosage: 75 ?G, 1-0-0-0
     Route: 048

REACTIONS (3)
  - Accidental underdose [Unknown]
  - Product monitoring error [Unknown]
  - Impaired healing [Unknown]
